FAERS Safety Report 5373957-2 (Version None)
Quarter: 2007Q2

REPORT INFORMATION
  Report Type: 
  Country: None (occurrence: None)
  Receive Date: 20070627
  Receipt Date: 20070612
  Transmission Date: 20071010
  Serious: Yes (Other)
  Sender: FDA-Public Use
  Company Number: 8015817

PATIENT
  Age: 26 Year
  Sex: Female

DRUGS (6)
  1. KEPPRA [Suspect]
     Indication: COMPLEX PARTIAL SEIZURES
     Dosage: 1000 MG 2/D PO
     Route: 048
  2. KEPPRA [Suspect]
     Indication: GRAND MAL CONVULSION
     Dosage: 1000 MG 2/D PO
     Route: 048
  3. DILANTIN [Concomitant]
  4. DIAZEPAM [Concomitant]
  5. PRENATAL VITAMINS [Concomitant]
  6. CALCIUM SUPPLEMENT [Concomitant]

REACTIONS (4)
  - ABORTION SPONTANEOUS [None]
  - DRUG EXPOSURE DURING PREGNANCY [None]
  - INTRA-UTERINE DEATH [None]
  - PREGNANCY [None]
